FAERS Safety Report 8053632-6 (Version None)
Quarter: 2012Q1

REPORT INFORMATION
  Report Type: 
  Country: None (occurrence: None)
  Receive Date: 20120118
  Receipt Date: 20120109
  Transmission Date: 20120608
  Serious: Yes (Other)
  Sender: FDA-Public Use
  Company Number: US-BAYER-2010-002178

PATIENT
  Age: 25 Year
  Sex: Female
  Weight: 52 kg

DRUGS (5)
  1. MIDRIN [Concomitant]
  2. LYRICA [Concomitant]
  3. YAZ [Suspect]
     Indication: PRODUCT USED FOR UNKNOWN INDICATION
     Dosage: UNK
     Dates: start: 20040101, end: 20080101
  4. IBUPROFEN (ADVIL) [Concomitant]
     Indication: ABDOMINAL PAIN
     Dosage: UNK UNK, OW
     Dates: start: 20070601, end: 20070701
  5. TOPAMAX [Concomitant]

REACTIONS (8)
  - CHOLECYSTITIS CHRONIC [None]
  - INJURY [None]
  - GALLBLADDER INJURY [None]
  - DECREASED INTEREST [None]
  - EMOTIONAL DISTRESS [None]
  - ANXIETY [None]
  - GENERAL PHYSICAL HEALTH DETERIORATION [None]
  - PAIN [None]
